FAERS Safety Report 6178789-3 (Version None)
Quarter: 2009Q2

REPORT INFORMATION
  Report Type: 
  Country: None (occurrence: None)
  Receive Date: 20090504
  Receipt Date: 20090302
  Transmission Date: 20091009
  Serious: No
  Sender: FDA-Public Use
  Company Number: US-ALEXION-A200900171

PATIENT
  Sex: Male

DRUGS (9)
  1. SOLIRIS [Suspect]
     Indication: PAROXYSMAL NOCTURNAL HAEMOGLOBINURIA
     Dosage: 600 MG, QW
     Route: 042
     Dates: start: 20081007, end: 20081028
  2. SOLIRIS [Suspect]
     Dosage: 900 MG, Q2W
     Route: 042
     Dates: start: 20081104
  3. GEMZAR [Concomitant]
     Indication: PANCREATIC CARCINOMA
     Dosage: Q2W
     Route: 042
  4. PREDNISONE [Concomitant]
     Indication: PAROXYSMAL NOCTURNAL HAEMOGLOBINURIA
     Dosage: 1 TO 2, QD
     Route: 048
  5. OXYCONTIN [Concomitant]
     Indication: PAIN
     Dosage: 30 MG, BID, Q12H
     Route: 048
  6. ATIVAN [Concomitant]
     Indication: ANXIETY
     Dosage: 1 MG, PRN
     Route: 048
  7. ZOFRAN [Concomitant]
     Indication: NAUSEA
     Dosage: 8 MG, TID, Q8H
     Route: 048
  8. COMPAZINE                          /00013302/ [Concomitant]
     Indication: NAUSEA
     Dosage: UNK
     Route: 048
  9. OXYCODONE [Concomitant]
     Indication: PAIN
     Dosage: 5 MG, QID, Q6H
     Route: 048

REACTIONS (5)
  - DECREASED APPETITE [None]
  - HAEMOGLOBINURIA [None]
  - URINARY TRACT INFECTION [None]
  - URINARY TRACT INFECTION BACTERIAL [None]
  - WHITE BLOOD CELL COUNT INCREASED [None]
